FAERS Safety Report 4862677-6 (Version None)
Quarter: 2005Q4

REPORT INFORMATION
  Report Type: 
  Country: None (occurrence: None)
  Receive Date: 20051221
  Receipt Date: 20050909
  Transmission Date: 20060501
  Serious: Yes (Hospitalization, Disabling)
  Sender: FDA-Public Use
  Company Number: US-MERCK-0509USA01683

PATIENT
  Age: 53 Year
  Sex: Male
  Weight: 109 kg

DRUGS (6)
  1. VOLTAREN [Concomitant]
     Route: 065
  2. WELLBUTRIN [Concomitant]
     Route: 065
  3. TOPROL-XL [Concomitant]
     Route: 065
     Dates: start: 20030101
  4. VIOXX [Suspect]
     Indication: BACK PAIN
     Route: 048
     Dates: start: 19990720, end: 20030901
  5. LIPITOR [Concomitant]
     Route: 065
  6. SKELAXIN [Concomitant]
     Route: 065
     Dates: start: 19990101

REACTIONS (15)
  - ACUTE MYOCARDIAL INFARCTION [None]
  - ANAEMIA POSTOPERATIVE [None]
  - ANXIETY [None]
  - BACK INJURY [None]
  - BLOOD PRESSURE INADEQUATELY CONTROLLED [None]
  - CORONARY ARTERY DISEASE [None]
  - CORONARY ARTERY OCCLUSION [None]
  - DEPRESSION [None]
  - ELECTROCARDIOGRAM ST SEGMENT DEPRESSION [None]
  - FEAR [None]
  - HAEMORRHAGE [None]
  - HYPERLIPIDAEMIA [None]
  - HYPERTENSION [None]
  - IMPAIRED WORK ABILITY [None]
  - PROSTATE CANCER [None]
